FAERS Safety Report 18311081 (Version 1)
Quarter: 2020Q3

REPORT INFORMATION
  Report Type: Spontaneous
  Country: FR (occurrence: FR)
  Receive Date: 20200924
  Receipt Date: 20200924
  Transmission Date: 20201103
  Serious: Yes (Hospitalization, Congenital Anomaly)
  Sender: FDA-Public Use
  Company Number: FR-ROCHE-2681050

PATIENT

DRUGS (7)
  1. CLONAZEPAM. [Suspect]
     Active Substance: CLONAZEPAM
     Indication: PRODUCT USED FOR UNKNOWN INDICATION
     Dosage: 1 VIAL EVERY 6 HOURS PROGRESSIVELY DECREASED
     Route: 064
     Dates: start: 20030317
  2. DEPAKINE [Suspect]
     Active Substance: VALPROATE SODIUM
     Dosage: UNK
     Route: 064
     Dates: start: 20030320
  3. MAGNESIUM SULFATE. [Suspect]
     Active Substance: MAGNESIUM SULFATE
     Indication: PRODUCT USED FOR UNKNOWN INDICATION
     Dosage: UNK
     Route: 064
     Dates: start: 20030317, end: 20030317
  4. DEPAKINE [Suspect]
     Active Substance: VALPROATE SODIUM
     Dosage: 1500 MG, QD
     Route: 064
     Dates: start: 20030318
  5. MIDAZOLAM. [Suspect]
     Active Substance: MIDAZOLAM
     Indication: PRODUCT USED FOR UNKNOWN INDICATION
     Dosage: UNK
     Route: 064
     Dates: start: 20030317, end: 20030317
  6. DEPAKINE [Suspect]
     Active Substance: VALPROATE SODIUM
     Indication: PRODUCT USED FOR UNKNOWN INDICATION
     Dosage: 500 MG, QD
     Route: 064
     Dates: start: 20030513, end: 20030621
  7. DEPAKINE [Suspect]
     Active Substance: VALPROATE SODIUM
     Dosage: UNK
     Route: 064
     Dates: start: 20021010, end: 20030621

REACTIONS (21)
  - Autism spectrum disorder [Unknown]
  - Language disorder [Unknown]
  - Social (pragmatic) communication disorder [Unknown]
  - Anxiety disorder [Unknown]
  - Astigmatism [Unknown]
  - Hyperkinesia [Unknown]
  - Hypotonia [Unknown]
  - Macrocephaly [Unknown]
  - Gross motor delay [Unknown]
  - Coordination abnormal [Unknown]
  - Bronchiolitis [Unknown]
  - Dyspraxia [Unknown]
  - Foetal exposure during pregnancy [Unknown]
  - Ear infection [Unknown]
  - Adenoidal hypertrophy [Unknown]
  - Learning disorder [Unknown]
  - Intellectual disability [Unknown]
  - Psychomotor hyperactivity [Unknown]
  - Behaviour disorder [Unknown]
  - Echolalia [Unknown]
  - Speech disorder [Unknown]

NARRATIVE: CASE EVENT DATE: 20030621
